FAERS Safety Report 9614859 (Version 1)
Quarter: 2013Q4

REPORT INFORMATION
  Report Type: Spontaneous
  Country: US (occurrence: None)
  Receive Date: 20131009
  Receipt Date: 20131009
  Transmission Date: 20140711
  Serious: No
  Sender: FDA-Public Use
  Company Number: None

PATIENT
  Age: 6 Month
  Sex: Female

DRUGS (1)
  1. CLONIDINE [Suspect]
     Dosage: 0.1MG PATCH EVERY 7 DAYS, TRANSDERMAL
     Route: 062

REACTIONS (2)
  - Product label confusion [None]
  - Drug dose omission [None]
